FAERS Safety Report 6028888-1 (Version None)
Quarter: 2008Q4

REPORT INFORMATION
  Report Type: 
  Country: None (occurrence: None)
  Receive Date: 20081222
  Receipt Date: 20081029
  Transmission Date: 20090506
  Serious: No
  Sender: FDA-Public Use
  Company Number: ALL1-2008-03155

PATIENT
  Age: 41 Year
  Sex: Female
  Weight: 80.7 kg

DRUGS (6)
  1. VYVANSE [Suspect]
     Indication: ATTENTION DEFICIT/HYPERACTIVITY DISORDER
     Dosage: 70 MG, 1X/DAY:QD, ORAL
     Route: 048
     Dates: start: 20080604
  2. SYMBYAX (FLUOXETINE, OLANZAPINE) [Concomitant]
  3. KLONOPIN [Concomitant]
  4. NASACORT [Concomitant]
  5. TRIAMTERENE (TRIAMTERENE) [Concomitant]
  6. CHANTIX [Concomitant]

REACTIONS (6)
  - BIPOLAR I DISORDER [None]
  - DISTURBANCE IN ATTENTION [None]
  - DRUG INEFFECTIVE [None]
  - GASTRIC BANDING [None]
  - MYOSITIS [None]
  - PAIN [None]
